FAERS Safety Report 19209245 (Version 1)
Quarter: 2021Q2

REPORT INFORMATION
  Report Type: Spontaneous
  Country: US (occurrence: US)
  Receive Date: 20210503
  Receipt Date: 20210503
  Transmission Date: 20210717
  Serious: No
  Sender: FDA-Public Use
  Company Number: US-UPSHER-SMITH LABORATORIES, LLC-2021USL00058

PATIENT
  Sex: Female

DRUGS (1)
  1. TOSYMRA [Suspect]
     Active Substance: SUMATRIPTAN

REACTIONS (1)
  - Application site pain [Unknown]
